FAERS Safety Report 20278949 (Version 1)
Quarter: 2022Q1

REPORT INFORMATION
  Report Type: Spontaneous
  Country: CN (occurrence: CN)
  Receive Date: 20220103
  Receipt Date: 20220103
  Transmission Date: 20220424
  Serious: Yes (Hospitalization)
  Sender: FDA-Public Use
  Company Number: CN-NOVARTISPH-NVSC2021CN300408

PATIENT
  Age: 41 Year
  Sex: Female
  Weight: 68 kg

DRUGS (1)
  1. CARBAMAZEPINE [Suspect]
     Active Substance: CARBAMAZEPINE
     Indication: Hypoaesthesia
     Dosage: UNK, 0.300000 G, TID
     Route: 048
     Dates: start: 20211119, end: 20211228

REACTIONS (2)
  - Drug eruption [Recovering/Resolving]
  - Coagulation time shortened [Recovering/Resolving]

NARRATIVE: CASE EVENT DATE: 20211222
